FAERS Safety Report 7365222-9 (Version None)
Quarter: 2011Q1

REPORT INFORMATION
  Report Type: 
  Country: None (occurrence: None)
  Receive Date: 20110321
  Receipt Date: 20110317
  Transmission Date: 20110831
  Serious: Yes (Life-Threatening, Other)
  Sender: FDA-Public Use
  Company Number: IN-BRISTOL-MYERS SQUIBB COMPANY-15619729

PATIENT

DRUGS (1)
  1. BARACLUDE [Suspect]
     Indication: HEPATIC CIRRHOSIS

REACTIONS (1)
  - RENAL FAILURE [None]
